FAERS Safety Report 7634693-2 (Version None)
Quarter: 2011Q3

REPORT INFORMATION
  Report Type: 
  Country: None (occurrence: None)
  Receive Date: 20110725
  Receipt Date: 20090930
  Transmission Date: 20111222
  Serious: Yes (Other)
  Sender: FDA-Public Use
  Company Number: US-BAYER-200934727NA

PATIENT
  Age: 50 Year
  Sex: Female
  Weight: 113 kg

DRUGS (12)
  1. PREMARIN [Concomitant]
     Dosage: 0.625 MG, QD
     Route: 048
  2. ESTRADIOL [Concomitant]
     Dosage: DAILY
     Route: 048
  3. HEPARIN [Concomitant]
  4. TRASYLOL [Suspect]
     Dosage: 200 ML INFUSION OVER 5 HOURS
     Route: 042
     Dates: start: 20001101
  5. MAGNESIUM SULFATE [Concomitant]
  6. LACTATED RINGER'S [Concomitant]
     Dosage: 2000 ML, UNK
     Route: 042
  7. DOPAMINE HCL [Concomitant]
  8. TRASYLOL [Suspect]
     Indication: CORONARY ARTERY BYPASS
     Dosage: 100 ML PUMP PRIME
     Route: 042
     Dates: start: 20001101
  9. TRASYLOL [Suspect]
     Dosage: UNK, TEST DOSE
     Route: 042
     Dates: start: 20001101
  10. VERSED [Concomitant]
     Dosage: 15 MG, UNK
     Route: 042
  11. HYDROCHLOROTHIAZIDE [Concomitant]
     Dosage: UNK UNK, QD
     Route: 048
  12. FENTANYL [Concomitant]
     Dosage: 10 MG, UNK
     Route: 042

REACTIONS (8)
  - INJURY [None]
  - ANXIETY [None]
  - CEREBROVASCULAR ACCIDENT [None]
  - UNEVALUABLE EVENT [None]
  - DEPRESSION [None]
  - FEAR [None]
  - PAIN [None]
  - ANHEDONIA [None]
